FAERS Safety Report 4325888-4 (Version None)
Quarter: 2004Q1

REPORT INFORMATION
  Report Type: 
  Country: None (occurrence: None)
  Receive Date: 20040323
  Receipt Date: 20040310
  Transmission Date: 20041129
  Serious: Yes (Death, Life-Threatening, Hospitalization)
  Sender: FDA-Public Use
  Company Number: NSADSS2003000555

PATIENT
  Age: 20 Year
  Sex: Male
  Weight: 65.318 kg

DRUGS (7)
  1. REMICADE [Suspect]
     Indication: COLITIS ULCERATIVE
     Dosage: SEE IMAGE
     Route: 041
     Dates: start: 20011011, end: 20011011
  2. REMICADE [Suspect]
     Indication: COLITIS ULCERATIVE
     Dosage: SEE IMAGE
     Route: 041
     Dates: start: 20011024, end: 20011024
  3. REMICADE [Suspect]
     Indication: COLITIS ULCERATIVE
     Dosage: SEE IMAGE
     Route: 041
     Dates: start: 20011224, end: 20011224
  4. REMICADE [Suspect]
     Indication: COLITIS ULCERATIVE
     Dosage: SEE IMAGE
     Route: 041
     Dates: start: 20020108, end: 20020108
  5. 6-MP (MERCAPTOPURINE0 [Concomitant]
  6. ASACOL [Concomitant]
  7. PREDNISONE [Concomitant]

REACTIONS (18)
  - ATELECTASIS [None]
  - BLOOD CREATININE INCREASED [None]
  - BLOOD LACTIC ACID INCREASED [None]
  - BLOOD UREA INCREASED [None]
  - CHOLANGITIS [None]
  - CHOLECYSTITIS [None]
  - COLITIS [None]
  - EPSTEIN-BARR VIRUS INFECTION [None]
  - GALLBLADDER DISORDER [None]
  - GRAFT VERSUS HOST DISEASE [None]
  - HEPATOSPLENOMEGALY [None]
  - HYPOTENSION [None]
  - LYMPHOMA [None]
  - NATURAL KILLER-CELL LEUKAEMIA [None]
  - PLEURAL EFFUSION [None]
  - POST PROCEDURAL HAEMORRHAGE [None]
  - PYREXIA [None]
  - WHITE BLOOD CELL COUNT INCREASED [None]
